FAERS Safety Report 7785324-2 (Version None)
Quarter: 2011Q3

REPORT INFORMATION
  Report Type: 
  Country: None (occurrence: None)
  Receive Date: 20110929
  Receipt Date: 20110926
  Transmission Date: 20111222
  Serious: No
  Sender: FDA-Public Use
  Company Number: US-PFIZER INC-2011229106

PATIENT
  Age: 81 Year
  Sex: Female

DRUGS (7)
  1. BENAZEPRIL [Concomitant]
     Indication: HYPERTENSION
     Dosage: 20 MG, UNK
  2. CELEBREX [Concomitant]
     Dosage: 200 MG, UNK
  3. PRAVASTATIN [Concomitant]
     Indication: BLOOD CHOLESTEROL INCREASED
     Dosage: 10 MG, UNK
  4. COUMADIN [Concomitant]
     Dosage: 2.5 MG, UNK
  5. IBUPROFEN (ADVIL) [Suspect]
     Indication: HEADACHE
     Dosage: 200 MG, AS NEEDED
     Route: 048
     Dates: end: 20110920
  6. AMLODIPINE [Concomitant]
     Indication: HYPERTENSION
     Dosage: 5 MG, UNK
  7. SYNTHROID [Concomitant]
     Dosage: 88 UG, UNK

REACTIONS (1)
  - HEADACHE [None]
